FAERS Safety Report 19705450 (Version 7)
Quarter: 2021Q3

REPORT INFORMATION
  Report Type: Report from Study
  Country: ES (occurrence: ES)
  Receive Date: 20210816
  Receipt Date: 20210921
  Transmission Date: 20211014
  Serious: Yes (Hospitalization)
  Sender: FDA-Public Use
  Company Number: ES-EISAI MEDICAL RESEARCH-EC-2021-097873

PATIENT
  Age: 68 Year
  Sex: Female
  Weight: 62.6 kg

DRUGS (19)
  1. ACETAMINOPHEN. [Concomitant]
     Active Substance: ACETAMINOPHEN
     Dates: start: 20201206
  2. ENALAPRIL [Concomitant]
     Active Substance: ENALAPRIL
     Dates: start: 20210208, end: 20210807
  3. PEMBROLIZUMAB. [Suspect]
     Active Substance: PEMBROLIZUMAB
     Indication: COLORECTAL CANCER
     Route: 042
     Dates: start: 20210105, end: 20210622
  4. PEMBROLIZUMAB. [Suspect]
     Active Substance: PEMBROLIZUMAB
     Route: 042
     Dates: start: 20210713, end: 20210713
  5. OMEPRAZOLE. [Concomitant]
     Active Substance: OMEPRAZOLE
     Dates: start: 20201206
  6. NOLOTIL [METAMIZOLE MAGNESIUM] [Concomitant]
     Active Substance: METAMIZOLE MAGNESIUM
     Dates: start: 20210726, end: 20210820
  7. PROLIA [Concomitant]
     Active Substance: DENOSUMAB
     Route: 058
     Dates: start: 20201206
  8. SIMVASTIN [Concomitant]
     Active Substance: SIMVASTATIN
     Dates: start: 20210406
  9. LENVATINIB [Suspect]
     Active Substance: LENVATINIB
     Route: 048
     Dates: start: 20210826
  10. LEVOTIROXINA [LEVOTHYROXINE SODIUM] [Concomitant]
     Dates: start: 20201206
  11. TRAMADOL HYDROCHLORIDE. [Concomitant]
     Active Substance: TRAMADOL HYDROCHLORIDE
     Dates: start: 20201206, end: 20210808
  12. CHOLECALCIFEROL [Concomitant]
     Active Substance: CHOLECALCIFEROL
     Dates: start: 20201206
  13. HIDROFEROL [Concomitant]
     Active Substance: CALCIFEDIOL
     Dates: start: 20201206
  14. CLEXANE [Concomitant]
     Active Substance: ENOXAPARIN SODIUM
     Route: 058
     Dates: start: 20201217
  15. FORTASEC [LOPERAMIDE HYDROCHLORIDE] [Concomitant]
     Active Substance: LOPERAMIDE HYDROCHLORIDE
     Dates: start: 20210707
  16. LENVATINIB [Suspect]
     Active Substance: LENVATINIB
     Route: 048
     Dates: start: 20210713, end: 20210807
  17. CALCIUM [Concomitant]
     Active Substance: CALCIUM
     Dates: start: 20201206
  18. LENVATINIB [Suspect]
     Active Substance: LENVATINIB
     Indication: COLORECTAL CANCER
     Dosage: STARTING DOSE AT 20 MILLIGRAM, QD, FLUCTUATED DOSAGE
     Route: 048
     Dates: start: 20210105, end: 20210712
  19. PEMBROLIZUMAB. [Suspect]
     Active Substance: PEMBROLIZUMAB
     Route: 042
     Dates: start: 20210803

REACTIONS (1)
  - Nausea [Recovered/Resolved]

NARRATIVE: CASE EVENT DATE: 20210727
